FAERS Safety Report 6029324-1 (Version None)
Quarter: 2009Q1

REPORT INFORMATION
  Report Type: 
  Country: None (occurrence: None)
  Receive Date: 20090106
  Receipt Date: 20081229
  Transmission Date: 20090719
  Serious: Yes (Hospitalization)
  Sender: FDA-Public Use
  Company Number: FR-ABBOTT-08P-056-0495230-00

PATIENT
  Age: 79 Year
  Sex: Female

DRUGS (2)
  1. DEPAKENE [Suspect]
     Indication: TREMOR
     Dosage: DAILY
     Route: 048
     Dates: start: 20081101
  2. OXITRIPTAN [Concomitant]
     Indication: MYOCLONUS
     Route: 048
     Dates: start: 20081101

REACTIONS (4)
  - CHOLECYSTITIS [None]
  - NAUSEA [None]
  - TRANSAMINASES INCREASED [None]
  - VOMITING [None]
